FAERS Safety Report 4791885-8 (Version None)
Quarter: 2005Q4

REPORT INFORMATION
  Report Type: 
  Country: None (occurrence: None)
  Receive Date: 20051005
  Receipt Date: 20050920
  Transmission Date: 20060501
  Serious: Yes (Congenital Anomaly)
  Sender: FDA-Public Use
  Company Number: 2005-0008716

PATIENT
  Sex: Female
  Weight: 2.6 kg

DRUGS (4)
  1. VIREAD [Suspect]
     Dosage: 300 MG, 1 IN 1 D, TRANSPLACENTAL
     Route: 064
     Dates: end: 20050308
  2. COMBIVIR [Concomitant]
  3. KALETRA [Concomitant]
  4. RETROVIR [Concomitant]

REACTIONS (3)
  - DRUG EXPOSURE DURING PREGNANCY [None]
  - KIDNEY MALFORMATION [None]
  - PREMATURE BABY [None]
